FAERS Safety Report 20901386 (Version 1)
Quarter: 2022Q2

REPORT INFORMATION
  Report Type: Spontaneous
  Country: US (occurrence: US)
  Receive Date: 20220601
  Receipt Date: 20220601
  Transmission Date: 20220721
  Serious: No
  Sender: FDA-Public Use
  Company Number: US-TEVA-2022-US-2034385

PATIENT
  Age: 71 Year
  Sex: Male

DRUGS (2)
  1. NAPHAZOLINE HYDROCHLORIDE [Suspect]
     Active Substance: NAPHAZOLINE HYDROCHLORIDE
     Indication: Seasonal allergy
     Route: 047
     Dates: start: 20220502
  2. NAPHAZOLINE HYDROCHLORIDE [Suspect]
     Active Substance: NAPHAZOLINE HYDROCHLORIDE
     Indication: Lacrimation increased

REACTIONS (2)
  - Foreign body in eye [Recovered/Resolved with Sequelae]
  - Product use issue [Unknown]

NARRATIVE: CASE EVENT DATE: 20220501
